FAERS Safety Report 7884606-3 (Version None)
Quarter: 2011Q4

REPORT INFORMATION
  Report Type: 
  Country: None (occurrence: None)
  Receive Date: 20111102
  Receipt Date: 20111026
  Transmission Date: 20120403
  Serious: No
  Sender: FDA-Public Use
  Company Number: US-BAUSCH-2011BL007366

PATIENT
  Age: 81 Year
  Sex: Male

DRUGS (3)
  1. BESIVANCE [Suspect]
     Indication: PROPHYLAXIS
     Route: 047
     Dates: start: 20111002, end: 20111012
  2. BESIVANCE [Suspect]
     Indication: POSTOPERATIVE CARE
     Route: 047
     Dates: start: 20111002, end: 20111012
  3. HYDROCHLOROTHIAZIDE [Concomitant]
     Route: 048

REACTIONS (1)
  - ENDOPHTHALMITIS [None]
